FAERS Safety Report 7918039-8 (Version None)
Quarter: 2011Q4

REPORT INFORMATION
  Report Type: 
  Country: None (occurrence: None)
  Receive Date: 20111114
  Receipt Date: 20111101
  Transmission Date: 20120403
  Serious: Yes (Other)
  Sender: FDA-Public Use
  Company Number: 1000025141

PATIENT
  Age: 82 Year
  Sex: Female
  Weight: 73.18 kg

DRUGS (7)
  1. MULTAQ [Suspect]
     Indication: ATRIAL FIBRILLATION
     Dosage: 800 MG (400 MG,2 IN 1 D),ORAL
     Route: 048
     Dates: start: 20101223, end: 20110927
  2. LEXAPRO [Suspect]
     Dosage: (20 DOSAGE FORMS)
  3. ACIPHEX (RABEPRAZOLE SODIUM)(RABEPRAZOLE SODIUM) [Concomitant]
  4. XANAX [Concomitant]
  5. DABIGATRAN ETEXILATE (DABIGATRAN ETEXILATE)(DABIGATRAN ETEXILATE) [Concomitant]
  6. METOPROLOL SUCCINATE [Concomitant]
  7. ASPIRIN [Concomitant]

REACTIONS (3)
  - VENTRICULAR TACHYCARDIA [None]
  - ELECTROCARDIOGRAM QT PROLONGED [None]
  - BUNDLE BRANCH BLOCK LEFT [None]
